FAERS Safety Report 8237253-8 (Version None)
Quarter: 2012Q1

REPORT INFORMATION
  Report Type: 
  Country: None (occurrence: None)
  Receive Date: 20120327
  Receipt Date: 20120327
  Transmission Date: 20120608
  Serious: Yes (Hospitalization)
  Sender: FDA-Public Use
  Company Number: None

PATIENT
  Age: 17 Year
  Sex: Female
  Weight: 58 kg

DRUGS (1)
  1. NORETHINDRONE ACETATE AND ETHINYL ESTRADIOL AND FERROUS FUMARATE [Suspect]
     Indication: MENORRHAGIA
     Dosage: 1 TABLET
     Route: 048

REACTIONS (6)
  - DIABETES MELLITUS [None]
  - VOMITING [None]
  - NEUTROPENIA [None]
  - DEEP VEIN THROMBOSIS [None]
  - ANTIPHOSPHOLIPID SYNDROME [None]
  - URINARY TRACT INFECTION [None]
